FAERS Safety Report 23996639 (Version 1)
Quarter: 2024Q2

REPORT INFORMATION
  Report Type: Spontaneous
  Country: PA (occurrence: PA)
  Receive Date: 20240620
  Receipt Date: 20240620
  Transmission Date: 20240715
  Serious: Yes (Other)
  Sender: FDA-Public Use
  Company Number: PA-002147023-NVSC2022PA231624

PATIENT
  Sex: Female

DRUGS (4)
  1. ANASTROZOLE [Suspect]
     Active Substance: ANASTROZOLE
     Indication: Breast cancer
     Dosage: UNK
     Route: 065
  2. KISQALI [Suspect]
     Active Substance: RIBOCICLIB
     Indication: Breast cancer metastatic
     Dosage: 600 MG, QD (ONCE A DAY)
     Route: 048
     Dates: start: 20221005
  3. ZOMETA [Suspect]
     Active Substance: ZOLEDRONIC ACID
     Indication: Breast cancer
     Dosage: UNK
     Route: 065
  4. CIPROFLOXACIN [Concomitant]
     Active Substance: CIPROFLOXACIN
     Indication: Product used for unknown indication
     Dosage: UNK
     Route: 065

REACTIONS (17)
  - Metastases to spine [Unknown]
  - Breast cancer metastatic [Unknown]
  - Malignant neoplasm progression [Unknown]
  - Metastases to bone [Not Recovered/Not Resolved]
  - Pulmonary oedema [Unknown]
  - Pulmonary mass [Unknown]
  - Laboratory test abnormal [Unknown]
  - Breast swelling [Unknown]
  - Peripheral swelling [Unknown]
  - Soft tissue disorder [Unknown]
  - Movement disorder [Not Recovered/Not Resolved]
  - Insomnia [Recovering/Resolving]
  - Tumour marker increased [Unknown]
  - Dry mouth [Unknown]
  - Constipation [Unknown]
  - Malaise [Unknown]
  - Pain [Recovering/Resolving]
